FAERS Safety Report 8217848 (Version 2)
Quarter: 2012Q4

REPORT INFORMATION
  Report Type: 
  Country: US (occurrence: US)
  Receive Date: 20111101
  Receipt Date: 20120830
  Transmission Date: 20130627
  Serious: Yes (Hospitalization, Disabling, Other)
  Sender: FDA-Public Use
  Company Number: US-ASTRAZENECA-2010SE42757

PATIENT
  Age: 63 Year
  Sex: Female
  Weight: 86.9 kg

DRUGS (15)
  1. NEXIUM [Suspect]
     Route: 048
  2. VANCOMYCIN [Suspect]
     Route: 065
  3. DOCUSATE [Concomitant]
     Route: 048
  4. HEPARIN [Concomitant]
     Route: 058
  5. HEPARIN [Concomitant]
     Dosage: UNTIL ADEQUATELY MOBILE
     Route: 058
  6. LANSOPRAZOLE [Concomitant]
  7. NYSTATIN [Concomitant]
     Indication: ANTIBIOTIC PROPHYLAXIS
     Dosage: EVERY DAY
     Route: 061
  8. MULTIVITAMIN [Concomitant]
     Route: 048
  9. ACETAMINOPHEN [Concomitant]
     Indication: PAIN
  10. ACETAMINOPHEN [Concomitant]
     Indication: PYREXIA
  11. ACETAMINOPHEN [Concomitant]
     Indication: PAIN
  12. ACETAMINOPHEN [Concomitant]
     Indication: PYREXIA
  13. BISACODYL [Concomitant]
     Indication: CONSTIPATION
     Route: 054
  14. OXYCODONE [Concomitant]
     Indication: PAIN
     Dosage: 1 TO 2, Q 3-4 HOURS AS NEEDED
  15. ANTISEIZURE MEDICATION [Concomitant]
     Indication: CONVULSION PROPHYLAXIS

REACTIONS (19)
  - Subarachnoid haemorrhage [Unknown]
  - Intracranial aneurysm [Unknown]
  - Aneurysm ruptured [Recovering/Resolving]
  - Hypertension [Unknown]
  - Gastrooesophageal reflux disease [Unknown]
  - Pneumonia aspiration [Unknown]
  - Ulcer [Recovering/Resolving]
  - Barrett^s oesophagus [Unknown]
  - Aphasia [Unknown]
  - Pulmonary arterial pressure increased [Unknown]
  - Ventricular hypokinesia [Unknown]
  - Aortic valve sclerosis [Unknown]
  - Tricuspid valve incompetence [Unknown]
  - Systolic dysfunction [Unknown]
  - Ejection fraction [Unknown]
  - White blood cell count decreased [Unknown]
  - Cognitive disorder [Unknown]
  - Dysphagia [Unknown]
  - Memory impairment [Unknown]
